FAERS Safety Report 8393263-1 (Version None)
Quarter: 2012Q2

REPORT INFORMATION
  Report Type: 
  Country: None (occurrence: None)
  Receive Date: 20120529
  Receipt Date: 20120515
  Transmission Date: 20120825
  Serious: Yes (Hospitalization, Congenital Anomaly, Other)
  Sender: FDA-Public Use
  Company Number: US-ROCHE-GNE316742

PATIENT
  Sex: Male
  Weight: 2.724 kg

DRUGS (4)
  1. ERYTHROMYCIN [Concomitant]
     Indication: EYE INFECTION
     Dates: start: 20110408, end: 20110408
  2. METHADON HCL TAB [Suspect]
     Indication: BACK PAIN
  3. OMALIZUMAB [Suspect]
     Indication: ASTHMA
     Dosage: LAST DOSE PRIOR TO ONSET:30/MAR/2011
     Route: 064
     Dates: start: 20100618, end: 20110330
  4. MORPHINE SULFATE [Suspect]
     Indication: BACK PAIN
     Route: 064

REACTIONS (5)
  - DRUG WITHDRAWAL SYNDROME [None]
  - BODY HEIGHT BELOW NORMAL [None]
  - ANAEMIA [None]
  - CRYPTORCHISM [None]
  - REPRODUCTIVE TRACT HYPOPLASIA, MALE [None]
